FAERS Safety Report 24330366 (Version 1)
Quarter: 2024Q3

REPORT INFORMATION
  Report Type: Spontaneous
  Country: AU (occurrence: AU)
  Receive Date: 20240918
  Receipt Date: 20240918
  Transmission Date: 20241016
  Serious: Yes (Other)
  Sender: ASTELLAS
  Company Number: AU-ASTELLAS-2024-AER-005899

PATIENT
  Age: 70 Year
  Sex: Female

DRUGS (3)
  1. ERLOTINIB [Suspect]
     Active Substance: ERLOTINIB
     Indication: Lung adenocarcinoma stage III
     Dosage: DOSE REDUCED
     Route: 065
     Dates: start: 2020, end: 2020
  2. ERLOTINIB [Suspect]
     Active Substance: ERLOTINIB
     Route: 065
     Dates: start: 2020, end: 2020
  3. DOXYCYCLINE [Concomitant]
     Active Substance: DOXYCYCLINE\DOXYCYCLINE HYCLATE
     Indication: Malaise
     Dosage: TWO DOSES OF DOXYCYCLINE LEFT OVER FROM HER PREVIOUS ERLOTINIB TREATMENT
     Route: 065

REACTIONS (2)
  - Diverticulitis [Unknown]
  - Toxicity to various agents [Unknown]

NARRATIVE: CASE EVENT DATE: 20200101
